FAERS Safety Report 9465995 (Version 1)
Quarter: 2013Q3

REPORT INFORMATION
  Report Type: Spontaneous
  Country: US (occurrence: US)
  Receive Date: 20130820
  Receipt Date: 20130820
  Transmission Date: 20140515
  Serious: No
  Sender: FDA-Public Use
  Company Number: US-009507513-1308USA005603

PATIENT
  Sex: 0

DRUGS (1)
  1. FOSAMAX [Suspect]
     Dosage: 70 MG DAILY
     Route: 048
     Dates: start: 20130717, end: 20130729

REACTIONS (3)
  - Overdose [Unknown]
  - Inappropriate schedule of drug administration [Unknown]
  - No adverse event [Unknown]
